FAERS Safety Report 6678945-1 (Version None)
Quarter: 2010Q2

REPORT INFORMATION
  Report Type: 
  Country: None (occurrence: None)
  Receive Date: 20100402
  Receipt Date: 20090528
  Transmission Date: 20101027
  Serious: Yes (Other)
  Sender: FDA-Public Use
  Company Number: 2009219597

PATIENT
  Age: 43 Year
  Sex: Female

DRUGS (6)
  1. ARGATROBAN [Suspect]
     Indication: ANTIPHOSPHOLIPID SYNDROME
     Dosage: 1.5MCG/KG/MIN, INTRAVENOUS
     Route: 042
     Dates: start: 20090527, end: 20090527
  2. ARGATROBAN [Suspect]
     Indication: DEEP VEIN THROMBOSIS
     Dosage: 1.5MCG/KG/MIN, INTRAVENOUS
     Route: 042
     Dates: start: 20090527, end: 20090527
  3. WARFARIN SODIUM [Concomitant]
  4. DIAZEPAM [Concomitant]
  5. DILAUDID [Concomitant]
  6. ZOFRAN [Concomitant]

REACTIONS (1)
  - ACTIVATED PARTIAL THROMBOPLASTIN TIME PROLONGED [None]
